FAERS Safety Report 13870318 (Version 1)
Quarter: 2017Q3

REPORT INFORMATION
  Report Type: Spontaneous
  Country: US (occurrence: US)
  Receive Date: 20170815
  Receipt Date: 20170815
  Transmission Date: 20171127
  Serious: No
  Sender: FDA-Public Use
  Company Number: US-ACTELION-A-US2017-157824

PATIENT
  Age: 18 Month
  Sex: Female

DRUGS (1)
  1. TRACLEER [Suspect]
     Active Substance: BOSENTAN
     Indication: PULMONARY ARTERIAL HYPERTENSION
     Dosage: 1.56 MG, UNK
     Route: 048
     Dates: start: 20160519, end: 20170724

REACTIONS (2)
  - Drug administered to patient of inappropriate age [Unknown]
  - Therapy non-responder [Unknown]
